FAERS Safety Report 5091055-2 (Version None)
Quarter: 2006Q3

REPORT INFORMATION
  Report Type: 
  Country: None (occurrence: None)
  Receive Date: 20060829
  Receipt Date: 20060616
  Transmission Date: 20061208
  Serious: No
  Sender: FDA-Public Use
  Company Number: US-GLAXOSMITHKLINE-A0609500A

PATIENT
  Age: 55 Year
  Sex: Female

DRUGS (3)
  1. ACYCLOVIR [Suspect]
     Dosage: 400MG AS REQUIRED
     Route: 048
     Dates: start: 20060101
  2. UNSPECIFIED MEDICATION [Concomitant]
  3. HORMONAL THERAPY [Concomitant]

REACTIONS (4)
  - DIARRHOEA [None]
  - DRUG INEFFECTIVE [None]
  - HERPES SIMPLEX [None]
  - PAIN [None]
